FAERS Safety Report 9651969 (Version 1)
Quarter: 2013Q4

REPORT INFORMATION
  Report Type: Spontaneous
  Country: US (occurrence: None)
  Receive Date: 20131028
  Receipt Date: 20131028
  Transmission Date: 20140711
  Serious: Yes (Hospitalization)
  Sender: FDA-Public Use
  Company Number: None

PATIENT
  Age: 52 Year
  Sex: Female
  Weight: 41 kg

DRUGS (5)
  1. AMITRIPTYLLINE [Suspect]
     Indication: FIBROMYALGIA
     Dates: end: 20110627
  2. ALPRAZOLAM [Suspect]
     Dates: end: 20110627
  3. ALPRAZOLAM [Concomitant]
  4. OXYCODONE [Concomitant]
  5. ACETAMINOPHEN [Concomitant]

REACTIONS (4)
  - Substance abuse [None]
  - Fibromyalgia [None]
  - Depression [None]
  - Bradycardia [None]
